FAERS Safety Report 19610303 (Version 3)
Quarter: 2021Q3

REPORT INFORMATION
  Report Type: Spontaneous
  Country: US (occurrence: US)
  Receive Date: 20210726
  Receipt Date: 20210928
  Transmission Date: 20211014
  Serious: No
  Sender: FDA-Public Use
  Company Number: US-BIOGEN-2021BI01032515

PATIENT
  Age: 44 Year
  Sex: Female

DRUGS (4)
  1. TYSABRI [Suspect]
     Active Substance: NATALIZUMAB
     Indication: MULTIPLE SCLEROSIS
     Route: 042
  2. TYSABRI [Suspect]
     Active Substance: NATALIZUMAB
     Dosage: IN PAST
     Route: 065
     Dates: start: 20171111, end: 20180210
  3. TYSABRI [Suspect]
     Active Substance: NATALIZUMAB
     Dosage: IN PAST
     Route: 065
     Dates: start: 20120830, end: 20170607
  4. TYSABRI [Suspect]
     Active Substance: NATALIZUMAB
     Route: 042
     Dates: start: 20210731

REACTIONS (1)
  - Medical device site pain [Unknown]

NARRATIVE: CASE EVENT DATE: 202107
